FAERS Safety Report 12517872 (Version 4)
Quarter: 2016Q4

REPORT INFORMATION
  Report Type: Report from Study
  Country: AR (occurrence: AR)
  Receive Date: 20160630
  Receipt Date: 20161005
  Transmission Date: 20170207
  Serious: Yes (Other)
  Sender: FDA-Public Use
  Company Number: PHHY2016AR088163

PATIENT
  Age: 76 Year
  Sex: Male

DRUGS (7)
  1. DIOVAN [Suspect]
     Active Substance: VALSARTAN
     Dosage: 0.5 DF, QHS
     Route: 065
  2. DIOVAN [Suspect]
     Active Substance: VALSARTAN
     Dosage: 1 DF, BID (1IN THE MORNING AND 1 AT NIGHT)
     Route: 065
     Dates: start: 201605
  3. ACETYLSALICYLIC ACID [Concomitant]
     Active Substance: ASPIRIN
     Indication: PRODUCT USED FOR UNKNOWN INDICATION
     Dosage: 1 DF, UNK
     Route: 065
  4. BISOPROLOL [Concomitant]
     Active Substance: BISOPROLOL
     Indication: PRODUCT USED FOR UNKNOWN INDICATION
     Dosage: 0.5 OT, QD (IN THE MORNING)
     Route: 065
  5. DIOVAN [Suspect]
     Active Substance: VALSARTAN
     Indication: HYPERTENSION
     Dosage: 1 DF, QD (6 OR 7 YEARS AGO)
     Route: 065
  6. DIOVAN D [Suspect]
     Active Substance: HYDROCHLOROTHIAZIDE\VALSARTAN
     Indication: HYPERTENSION
     Dosage: 1 DF(HYDROCHLOROTHIAZIDE 12.5 MG, VALSARTAN 80 MG), QD (SPORADICALLY)
     Route: 065
     Dates: start: 201603
  7. ROSUVASTATIN. [Concomitant]
     Active Substance: ROSUVASTATIN
     Indication: BLOOD CHOLESTEROL
     Dosage: 5 MG, UNK (PAST 8 YEARS)
     Route: 065

REACTIONS (7)
  - Stress [Recovering/Resolving]
  - Blood pressure increased [Recovering/Resolving]
  - Arrhythmia [Recovered/Resolved]
  - Heart rate increased [Recovering/Resolving]
  - Blood uric acid increased [Unknown]
  - Wrong technique in product usage process [Unknown]
  - Drug prescribing error [Unknown]

NARRATIVE: CASE EVENT DATE: 201603
